FAERS Safety Report 7463798-4 (Version None)
Quarter: 2011Q2

REPORT INFORMATION
  Report Type: 
  Country: None (occurrence: None)
  Receive Date: 20110506
  Receipt Date: 20110427
  Transmission Date: 20111010
  Serious: Yes (Hospitalization, Other)
  Sender: FDA-Public Use
  Company Number: PHHY2008JP11869

PATIENT
  Sex: Female

DRUGS (15)
  1. PROGRAF [Suspect]
     Dosage: 2 MG
     Route: 048
     Dates: start: 20050228, end: 20050313
  2. PREDNISOLONE [Suspect]
     Indication: HEART TRANSPLANT
     Dosage: 2 MG
     Route: 048
     Dates: start: 20010501
  3. PROGRAF [Suspect]
     Indication: HEART TRANSPLANT
     Dosage: 3.6 MG
     Route: 048
     Dates: end: 20050227
  4. CELLCEPT [Suspect]
     Indication: HEART TRANSPLANT
     Dosage: 125 MG
     Route: 048
     Dates: start: 20040802
  5. BAKTAR [Concomitant]
     Indication: ANTIFUNGAL PROPHYLAXIS
     Dosage: 1.5 G
     Route: 048
     Dates: start: 20010501
  6. RITUXIMAB [Concomitant]
     Dosage: UNK
  7. POLYGAM S/D [Concomitant]
     Dosage: UNK
  8. CERTICAN [Suspect]
     Indication: HEART TRANSPLANT
     Dosage: 0.5 MG/DAY
     Route: 048
     Dates: start: 20050221, end: 20050227
  9. PROGRAF [Suspect]
     Dosage: 2.8 MG
     Route: 048
     Dates: start: 20050314
  10. TACROLIMUS [Suspect]
     Indication: HEART TRANSPLANT
     Dosage: UNK
  11. RENIVACE [Concomitant]
     Indication: HYPERTENSION
     Dosage: 1.25 MG
     Route: 048
     Dates: start: 20010501
  12. CERTICAN [Suspect]
     Dosage: UNK
     Route: 047
  13. CERTICAN [Suspect]
     Dosage: 1.5 MG/DAY
     Route: 048
     Dates: start: 20050304, end: 20050516
  14. CERTICAN [Suspect]
     Dosage: 1 MG/DAY
     Route: 048
     Dates: start: 20050228, end: 20050303
  15. PREDNISOLONE [Concomitant]
     Dosage: UNK

REACTIONS (18)
  - PNEUMONIA [None]
  - CARDIAC HYPERTROPHY [None]
  - PERICARDIAL EFFUSION [None]
  - OBSTRUCTIVE AIRWAYS DISORDER [None]
  - INFLUENZA LIKE ILLNESS [None]
  - LARYNGEAL OEDEMA [None]
  - ABDOMINAL PAIN [None]
  - HYPERCHOLESTEROLAEMIA [None]
  - BRONCHITIS [None]
  - PYREXIA [None]
  - C-REACTIVE PROTEIN INCREASED [None]
  - BRAIN NATRIURETIC PEPTIDE INCREASED [None]
  - LARYNGEAL NEOPLASM [None]
  - MYOCARDIAL OEDEMA [None]
  - EPSTEIN-BARR VIRUS ASSOCIATED LYMPHOPROLIFERATIVE DISORDER [None]
  - WHITE BLOOD CELL COUNT INCREASED [None]
  - HEART TRANSPLANT REJECTION [None]
  - LYMPHADENOPATHY [None]
